FAERS Safety Report 6648783-4 (Version None)
Quarter: 2010Q1

REPORT INFORMATION
  Report Type: 
  Country: None (occurrence: None)
  Receive Date: 20100324
  Receipt Date: 20100316
  Transmission Date: 20100710
  Serious: Yes (Other)
  Sender: FDA-Public Use
  Company Number: JP-MILLENNIUM PHARMACEUTICALS, INC.-2007-03482

PATIENT

DRUGS (14)
  1. VELCADE [Suspect]
     Indication: MULTIPLE MYELOMA
     Dosage: 2 MG, UNK
     Route: 042
     Dates: start: 20070129, end: 20080303
  2. DECADRON [Suspect]
     Indication: MULTIPLE MYELOMA
     Dosage: 4.00 MG, UNK
     Route: 048
     Dates: start: 20070129, end: 20070713
  3. DECADRON [Suspect]
     Dosage: 4.0 MG, UNK
     Route: 048
     Dates: start: 20070723
  4. ZANTAC [Concomitant]
     Indication: PROPHYLAXIS
     Dosage: 150.00 MG, UNK
     Route: 048
     Dates: start: 20070126
  5. ULCERLMIN [Concomitant]
     Indication: PROPHYLAXIS
     Dosage: 3.00 G, UNK
     Route: 048
     Dates: start: 20070210
  6. MAGNESIUM OXIDE [Concomitant]
     Indication: PROPHYLAXIS
     Dosage: 2.00 G, UNK
     Route: 048
     Dates: start: 20060703
  7. MAGNESIUM OXIDE [Concomitant]
     Dosage: 0.67 G, UNK
     Route: 048
     Dates: start: 20060703
  8. BUFFERIN [Concomitant]
     Indication: PROPHYLAXIS
     Dosage: 81.00 MG, UNK
     Route: 048
     Dates: start: 20040101, end: 20070206
  9. BAKTAR [Concomitant]
     Indication: PROPHYLAXIS
     Dosage: 4 DF, UNK
     Route: 048
     Dates: start: 20070101, end: 20070210
  10. BAKTAR [Concomitant]
     Dosage: 2.00 DF, UNK
     Route: 048
     Dates: start: 20070101, end: 20070211
  11. SOLDEM 1 [Concomitant]
     Indication: DIZZINESS
     Dosage: UNK
     Route: 048
     Dates: start: 20070611, end: 20070611
  12. SOLDEM 1 [Concomitant]
     Dosage: UNK
     Route: 042
     Dates: start: 20070412, end: 20070412
  13. SOLDEM 1 [Concomitant]
     Indication: BLOOD CREATININE INCREASED
     Dosage: UNK
     Route: 042
     Dates: start: 20070212
  14. SOLDEM 1 [Concomitant]
     Indication: HYPONATRAEMIA
     Dosage: UNK
     Route: 042
     Dates: start: 20070501, end: 20070501

REACTIONS (3)
  - HERPES ZOSTER [None]
  - INAPPROPRIATE ANTIDIURETIC HORMONE SECRETION [None]
  - NERVE INJURY [None]
